FAERS Safety Report 9919489 (Version 2)
Quarter: 2014Q2

REPORT INFORMATION
  Report Type: Spontaneous
  Country: IT (occurrence: IT)
  Receive Date: 20140224
  Receipt Date: 20140425
  Transmission Date: 20141212
  Serious: Yes (Hospitalization)
  Sender: FDA-Public Use
  Company Number: IT-NOVOPROD-400390

PATIENT
  Age: 71 Year
  Sex: Male

DRUGS (2)
  1. LEVEMIR FLEXPEN [Suspect]
     Indication: DIABETES MELLITUS
     Dosage: UNK
     Route: 058
     Dates: start: 20100310, end: 20140210
  2. HUMALOG [Suspect]
     Indication: DIABETES MELLITUS
     Dosage: UNK ( 7 POSOLOGICAL UNITS )
     Route: 058
     Dates: start: 20100310, end: 20140210

REACTIONS (3)
  - Gait disturbance [Recovered/Resolved]
  - Agitation [Recovered/Resolved]
  - Hypoglycaemia [Recovered/Resolved]
